FAERS Safety Report 18081229 (Version 1)
Quarter: 2020Q3

REPORT INFORMATION
  Report Type: Spontaneous
  Country: SE (occurrence: SE)
  Receive Date: 20200728
  Receipt Date: 20200728
  Transmission Date: 20201103
  Serious: Yes (Hospitalization, Other)
  Sender: FDA-Public Use
  Company Number: SE-SHIRE-SE202023946

PATIENT

DRUGS (1)
  1. ELVANSE [Suspect]
     Active Substance: LISDEXAMFETAMINE DIMESYLATE
     Indication: ATTENTION DEFICIT HYPERACTIVITY DISORDER
     Dosage: 40 MG DAG
     Route: 065
     Dates: start: 20200614

REACTIONS (2)
  - Aggression [Recovered/Resolved with Sequelae]
  - Suicide attempt [Recovered/Resolved with Sequelae]

NARRATIVE: CASE EVENT DATE: 202006
